FAERS Safety Report 9519532 (Version 2)
Quarter: 2013Q3

REPORT INFORMATION
  Report Type: Spontaneous
  Country: AU (occurrence: AU)
  Receive Date: 20130912
  Receipt Date: 20130912
  Transmission Date: 20140515
  Serious: Yes (Other)
  Sender: FDA-Public Use
  Company Number: AU-PFIZER INC-2013254670

PATIENT
  Sex: Male

DRUGS (3)
  1. NORVASC [Suspect]
     Dosage: 5 MG, UNK
  2. NORVASC [Suspect]
  3. NORVASC [Suspect]

REACTIONS (5)
  - Mental impairment [Unknown]
  - Abdominal pain upper [Unknown]
  - Headache [Unknown]
  - Nightmare [Unknown]
  - Product quality issue [Unknown]
